FAERS Safety Report 6936912-4 (Version None)
Quarter: 2010Q3

REPORT INFORMATION
  Report Type: 
  Country: None (occurrence: None)
  Receive Date: 20100823
  Receipt Date: 20100811
  Transmission Date: 20110219
  Serious: Yes (Hospitalization)
  Sender: FDA-Public Use
  Company Number: AT-ELI_LILLY_AND_COMPANY-AT201008003328

PATIENT
  Age: 69 Year
  Sex: Female

DRUGS (5)
  1. GEMZAR [Suspect]
     Indication: PANCREATIC CARCINOMA
     Dosage: UNK, UNKNOWN
     Route: 065
     Dates: start: 20100510, end: 20100510
  2. NOVALGIN [Concomitant]
     Dosage: 40 D/F, 3/D
     Route: 065
  3. TARCEVA [Concomitant]
     Dosage: 100 MG PILLS, DAILY (1/D)
     Route: 065
  4. LORAZEPAM [Concomitant]
     Dosage: 1 MG PILLS, DAILY (1/D)
     Route: 065
  5. ZURCAL [Concomitant]
     Dosage: 20 MG PILLS, DAILY (1/D)
     Route: 065

REACTIONS (2)
  - ABDOMINAL PAIN UPPER [None]
  - NAUSEA [None]
